FAERS Safety Report 5993725-8 (Version None)
Quarter: 2008Q4

REPORT INFORMATION
  Report Type: 
  Country: None (occurrence: None)
  Receive Date: 20081212
  Receipt Date: 20081201
  Transmission Date: 20090506
  Serious: Yes (Hospitalization)
  Sender: FDA-Public Use
  Company Number: JP-ELI_LILLY_AND_COMPANY-JP200811001439

PATIENT
  Age: 67 Year
  Sex: Female
  Weight: 48 kg

DRUGS (5)
  1. EVISTA [Suspect]
     Indication: OSTEOPOROSIS
     Dosage: 60 MG, DAILY (1/D)
     Route: 048
     Dates: start: 20050101
  2. MYSLEE [Concomitant]
     Indication: DEPRESSION
     Dosage: 1.5 D/F, DAILY (1/D)
     Route: 048
  3. RIZE [Concomitant]
     Indication: DEPRESSION
     Dosage: 1.5 D/F, DAILY (1/D)
     Route: 048
  4. YODEL [Concomitant]
     Indication: CONSTIPATION
     Dosage: 2 D/F, DAILY (1/D)
     Route: 048
  5. DOGMATYL [Concomitant]
     Indication: DEPRESSION
     Dosage: 1 D/F, DAILY (1/D)
     Route: 048
     Dates: start: 20050101

REACTIONS (1)
  - HYPOGLYCAEMIA [None]
